FAERS Safety Report 5532172-X (Version None)
Quarter: 2007Q4

REPORT INFORMATION
  Report Type: 
  Country: None (occurrence: None)
  Receive Date: 20071203
  Receipt Date: 20071128
  Transmission Date: 20080405
  Serious: Yes (Hospitalization)
  Sender: FDA-Public Use
  Company Number: NL-ASTRAZENECA-2007AC02328

PATIENT
  Age: 19685 Day
  Sex: Female

DRUGS (12)
  1. ATENOLOL [Suspect]
     Indication: HYPERTENSION
     Route: 048
     Dates: start: 20070718
  2. AMLODIPINE [Suspect]
     Indication: HYPERTENSION
     Route: 048
     Dates: start: 20070808, end: 20070815
  3. AMLODIPINE [Suspect]
     Route: 048
     Dates: start: 20070816
  4. QUESTRAN [Suspect]
     Route: 048
     Dates: start: 20071117
  5. AZD2171 CODE NOT BROKEN [Suspect]
     Indication: RENAL CELL CARCINOMA STAGE UNSPECIFIED
     Dosage: STOPPED DUE TO HYPERTENSION
     Route: 048
     Dates: start: 20070712, end: 20070717
  6. AZD2171 CODE NOT BROKEN [Suspect]
     Dosage: RESTARTED AT REDUCED DOSE
     Route: 048
     Dates: start: 20070723, end: 20070725
  7. AZD2171 CODE NOT BROKEN [Suspect]
     Dosage: DOSE INCREASED
     Route: 048
     Dates: start: 20070726, end: 20070729
  8. AZD2171 CODE NOT BROKEN [Suspect]
     Dosage: DOSE REDUCED DUE TO HYPERTENSION
     Route: 048
     Dates: start: 20070730, end: 20070807
  9. AZD2171 CODE NOT BROKEN [Suspect]
     Dosage: DOSE INCREASED
     Route: 048
     Dates: start: 20070808, end: 20071008
  10. PARACETAMOL [Concomitant]
     Indication: HEADACHE
     Route: 048
     Dates: start: 20070715
  11. OXAZEPAM [Concomitant]
     Indication: SLEEP DISORDER THERAPY
     Route: 048
     Dates: start: 20070530
  12. FLUCLOXACILLINE [Concomitant]
     Indication: SKIN INFECTION
     Route: 048
     Dates: start: 20070918

REACTIONS (1)
  - BURSITIS [None]
